FAERS Safety Report 9298231 (Version 1)
Quarter: 2013Q2

REPORT INFORMATION
  Report Type: Spontaneous
  Country: US (occurrence: US)
  Receive Date: 20130520
  Receipt Date: 20130520
  Transmission Date: 20140414
  Serious: No
  Sender: FDA-Public Use
  Company Number: US-PFIZER INC-2013151880

PATIENT
  Age: 69 Year
  Sex: Female

DRUGS (19)
  1. SKELAXIN [Suspect]
     Dosage: UNK
  2. AMIODARONE HCL [Suspect]
     Dosage: UNK
  3. ERYTHROMYCIN [Suspect]
     Dosage: UNK
  4. FENTANYL [Suspect]
     Dosage: UNK
  5. MORPHINE SULFATE [Suspect]
     Dosage: UNK
  6. OXAPROZIN [Suspect]
     Dosage: UNK
  7. CLINDAMYCIN HCL [Suspect]
     Dosage: UNK
  8. ATIVAN [Suspect]
     Dosage: UNK
  9. ASA [Suspect]
     Dosage: UNK
  10. CODEINE [Suspect]
     Dosage: UNK
  11. PROMETHAZINE HYDROCHLORIDE [Suspect]
     Dosage: UNK
  12. PERCODAN [Suspect]
     Dosage: UNK
  13. PREVACID [Suspect]
     Dosage: UNK
  14. COREG [Suspect]
     Dosage: UNK
  15. ACETAMINOPHEN [Suspect]
     Dosage: UNK
  16. BUMEX [Suspect]
     Dosage: UNK
  17. CYCLOBENZAPRINE [Suspect]
     Dosage: UNK
  18. BENADRYL [Suspect]
     Dosage: UNK
  19. ZAROXOLYN [Suspect]
     Dosage: UNK

REACTIONS (1)
  - Drug hypersensitivity [Unknown]
